FAERS Safety Report 21350169 (Version 12)
Quarter: 2025Q1

REPORT INFORMATION
  Report Type: Report from Study
  Country: US (occurrence: US)
  Receive Date: 20220919
  Receipt Date: 20250114
  Transmission Date: 20250409
  Serious: No
  Sender: TAKEDA
  Company Number: US-TAKEDA-2022TUS065377

PATIENT
  Sex: Female
  Weight: 63.492 kg

DRUGS (23)
  1. HUMAN IMMUNOGLOBULIN G [Suspect]
     Active Substance: HUMAN IMMUNOGLOBULIN G
     Indication: Selective IgG subclass deficiency
     Dosage: 12 GRAM, Q2WEEKS
     Dates: start: 20211118
  2. HUMAN IMMUNOGLOBULIN G [Suspect]
     Active Substance: HUMAN IMMUNOGLOBULIN G
     Dosage: 16 GRAM, Q2WEEKS
  3. TYLENOL [Suspect]
     Active Substance: ACETAMINOPHEN
     Indication: Product used for unknown indication
  4. OXYCODONE [Suspect]
     Active Substance: OXYCODONE
     Indication: Product used for unknown indication
  5. DIPHENHYDRAMINE HYDROCHLORIDE [Concomitant]
     Active Substance: DIPHENHYDRAMINE HYDROCHLORIDE
  6. BUPROPION HYDROCHLORIDE [Concomitant]
     Active Substance: BUPROPION HYDROCHLORIDE
  7. NASACORT [Concomitant]
     Active Substance: TRIAMCINOLONE ACETONIDE
  8. EPINEPHRINE [Concomitant]
     Active Substance: EPINEPHRINE
  9. CYTOMEL [Concomitant]
     Active Substance: LIOTHYRONINE SODIUM
  10. LEVOTHYROXINE SODIUM [Concomitant]
     Active Substance: LEVOTHYROXINE SODIUM
  11. ACETAMINOPHEN [Concomitant]
     Active Substance: ACETAMINOPHEN
  12. CLONAZEPAM [Concomitant]
     Active Substance: CLONAZEPAM
  13. MONTELUKAST SODIUM [Concomitant]
     Active Substance: MONTELUKAST SODIUM
  14. Lmx [Concomitant]
  15. ENTOCORT EC [Concomitant]
     Active Substance: BUDESONIDE
  16. ALLEGRA D-12 HOUR [Concomitant]
     Active Substance: FEXOFENADINE HYDROCHLORIDE\PSEUDOEPHEDRINE HYDROCHLORIDE
  17. TOPIRAMATE [Concomitant]
     Active Substance: TOPIRAMATE
  18. CETIRIZINE HCL [Concomitant]
     Active Substance: CETIRIZINE HYDROCHLORIDE
  19. Vicks Dayquil Nyquil cold + flu [Concomitant]
  20. ZYRTEC [Concomitant]
     Active Substance: CETIRIZINE HYDROCHLORIDE
  21. NASONEX [Concomitant]
     Active Substance: MOMETASONE FUROATE
  22. SINGULAIR [Concomitant]
     Active Substance: MONTELUKAST SODIUM
  23. LIDOCAINE [Concomitant]
     Active Substance: LIDOCAINE

REACTIONS (12)
  - Sneezing [Unknown]
  - Respiratory tract congestion [Unknown]
  - Drug hypersensitivity [Unknown]
  - Nasopharyngitis [Recovering/Resolving]
  - Multiple allergies [Unknown]
  - Bronchitis [Unknown]
  - Osteoporosis [Unknown]
  - COVID-19 [Unknown]
  - Reaction to preservatives [Unknown]
  - Rhinorrhoea [Unknown]
  - Influenza [Unknown]
  - Pruritus [Unknown]
